FAERS Safety Report 6462833-X (Version None)
Quarter: 2009Q4

REPORT INFORMATION
  Report Type: 
  Country: None (occurrence: None)
  Receive Date: 20091130
  Receipt Date: 20091120
  Transmission Date: 20100525
  Serious: Yes (Other)
  Sender: FDA-Public Use
  Company Number: BR-BAXTER-2009BH018120

PATIENT
  Age: 61 Year

DRUGS (1)
  1. SODIUM CHLORIDE 0.9% IN PLASTIC CONTAINER [Suspect]
     Indication: HAEMODIALYSIS
     Route: 010
     Dates: start: 20091118, end: 20091118

REACTIONS (4)
  - CHEST DISCOMFORT [None]
  - DISCOMFORT [None]
  - ERYTHEMA [None]
  - FEELING HOT [None]
